FAERS Safety Report 6897769-3 (Version None)
Quarter: 2010Q3

REPORT INFORMATION
  Report Type: 
  Country: None (occurrence: None)
  Receive Date: 20100802
  Receipt Date: 20070716
  Transmission Date: 20110219
  Serious: No
  Sender: FDA-Public Use
  Company Number: US-PFIZER INC-2007056677

PATIENT
  Sex: Male

DRUGS (8)
  1. LYRICA [Suspect]
     Indication: NEURALGIA
     Dates: start: 20070221
  2. LYRICA [Suspect]
     Indication: ARTHRITIS
  3. LYRICA [Suspect]
     Indication: SURGERY
  4. FUROSEMIDE [Suspect]
     Indication: OEDEMA PERIPHERAL
     Dates: start: 20070601, end: 20070101
  5. TAMSULOSIN HYDROCHLORIDE [Concomitant]
     Indication: PROSTATIC DISORDER
  6. PROSCAR [Concomitant]
     Indication: PROSTATIC DISORDER
  7. COMBIVENT [Concomitant]
     Indication: ASTHMA
  8. ALL OTHER THERAPEUTIC PRODUCTS [Concomitant]
     Indication: ASTHMA

REACTIONS (4)
  - DRUG INEFFECTIVE [None]
  - DRUG INTOLERANCE [None]
  - INSOMNIA [None]
  - OEDEMA PERIPHERAL [None]
